FAERS Safety Report 4885294-0 (Version None)
Quarter: 2006Q1

REPORT INFORMATION
  Report Type: 
  Country: None (occurrence: None)
  Receive Date: 20060119
  Receipt Date: 20050707
  Transmission Date: 20060701
  Serious: Yes (Hospitalization)
  Sender: FDA-Public Use
  Company Number: PHBS2005JP09734

PATIENT
  Age: 77 Year
  Sex: Male

DRUGS (9)
  1. LIVALO [Suspect]
     Indication: HYPERCHOLESTEROLAEMIA
     Dosage: 2 MG/DAY
     Route: 048
     Dates: start: 20050613, end: 20050615
  2. THEO-DUR [Suspect]
     Indication: ASTHMA
     Dosage: 100 MG
     Route: 048
     Dates: start: 20050428
  3. THEO-DUR [Suspect]
     Dosage: 200 MG/DAY
     Route: 048
     Dates: end: 20050615
  4. ZYLORIC [Concomitant]
     Dosage: UNK, UNK
     Route: 048
     Dates: start: 20000224, end: 20051220
  5. OMEPRAZOLE [Suspect]
     Indication: REFLUX OESOPHAGITIS
     Dosage: 10 MG/DAY
     Route: 048
     Dates: start: 20050428, end: 20050615
  6. DIOVAN [Concomitant]
     Dosage: 80 MG/DAY
     Route: 048
     Dates: start: 20050330, end: 20051220
  7. FLUTIDE [Concomitant]
     Dosage: 200 UG/DAY
     Dates: start: 20050326, end: 20051220
  8. SEREVENT [Concomitant]
     Dates: start: 20050329
  9. CASODEX [Concomitant]
     Dosage: 80 MG/DAY
     Route: 048
     Dates: end: 20050821

REACTIONS (3)
  - BLOOD CREATINE PHOSPHOKINASE INCREASED [None]
  - BLOOD CREATINE PHOSPHOKINASE MB INCREASED [None]
  - CHEST DISCOMFORT [None]
